FAERS Safety Report 4456176-3 (Version None)
Quarter: 2004Q3

REPORT INFORMATION
  Report Type: 
  Country: None (occurrence: None)
  Receive Date: 20040920
  Receipt Date: 20040906
  Transmission Date: 20050211
  Serious: Yes (Hospitalization, Other)
  Sender: FDA-Public Use
  Company Number: 2004054703

PATIENT
  Age: 80 Year
  Sex: Female
  Weight: 45.7 kg

DRUGS (6)
  1. FLUCAM (AMPIROXICAM) [Suspect]
     Indication: OSTEOARTHRITIS
     Dosage: 27 MG (27 MG, 1 IN 1 D),  ORAL
     Route: 048
  2. CLONAZEPAM [Suspect]
     Indication: TREMOR
     Dosage: 4 MG (3 IN 1 D), ORAL
     Route: 048
  3. METILDIGOXIN (METILDIGOXIN) [Suspect]
     Indication: HYPERTENSION
     Dosage: 0.1 MG (0.1 MG, 1 IN 1 D), ORAL
     Route: 048
  4. CEFACLOR [Suspect]
     Indication: INFECTION PROPHYLAXIS
     Dosage: 750 MG (250 MG, 3 IN 1 D), ORAL
     Route: 048
     Dates: start: 20040723, end: 20040728
  5. FAMOTIDINE [Concomitant]
  6. LIDOCAINE HYDROCHLORIDE [Concomitant]

REACTIONS (5)
  - BLOOD CREATINE PHOSPHOKINASE INCREASED [None]
  - DEPRESSED LEVEL OF CONSCIOUSNESS [None]
  - DRUG LEVEL INCREASED [None]
  - EYELID PTOSIS [None]
  - TREATMENT NONCOMPLIANCE [None]
